FAERS Safety Report 12173939 (Version 1)
Quarter: 2016Q1

REPORT INFORMATION
  Report Type: Spontaneous
  Country: US (occurrence: US)
  Receive Date: 20160314
  Receipt Date: 20160314
  Transmission Date: 20160526
  Serious: Yes (Other)
  Sender: FDA-Public Use
  Company Number: US-ALEXION PHARMACEUTICALS INC-A201601581

PATIENT
  Sex: Male

DRUGS (1)
  1. SOLIRIS [Suspect]
     Active Substance: ECULIZUMAB
     Indication: HAEMOLYTIC URAEMIC SYNDROME
     Route: 042

REACTIONS (10)
  - Gout [Unknown]
  - Blood pressure fluctuation [Not Recovered/Not Resolved]
  - Morbid thoughts [Unknown]
  - Feeling abnormal [Unknown]
  - Suicidal ideation [Unknown]
  - Insomnia [Unknown]
  - Aggression [Unknown]
  - Sleep disorder [Not Recovered/Not Resolved]
  - Depression [Unknown]
  - Pain [Not Recovered/Not Resolved]
